FAERS Safety Report 8903592 (Version 2)
Quarter: 2012Q4

REPORT INFORMATION
  Report Type: Report from Study
  Country: CH (occurrence: CH)
  Receive Date: 20121112
  Receipt Date: 20121130
  Transmission Date: 20130627
  Serious: Yes (Hospitalization)
  Sender: FDA-Public Use
  Company Number: CH-BAXTER-2012BAX022561

PATIENT
  Age: 56 Year
  Sex: Female
  Weight: 58 kg

DRUGS (19)
  1. ENDOXAN [Suspect]
     Indication: DIFFUSE LARGE B-CELL LYMPHOMA
     Route: 042
     Dates: start: 20121029
  2. ENDOXAN [Suspect]
     Route: 042
  3. RITUXIMAB [Suspect]
     Indication: DIFFUSE LARGE B-CELL LYMPHOMA
     Route: 042
     Dates: start: 20121029
  4. RITUXIMAB [Suspect]
     Route: 042
  5. DOXORUBICIN [Suspect]
     Indication: DIFFUSE LARGE B-CELL LYMPHOMA
     Route: 042
     Dates: start: 20121029
  6. DOXORUBICIN [Suspect]
     Route: 042
  7. VINCRISTINE [Suspect]
     Indication: DIFFUSE LARGE B-CELL LYMPHOMA
     Route: 040
     Dates: start: 20121029
  8. VINCRISTINE [Suspect]
     Route: 040
  9. PREDNISONE [Suspect]
     Indication: DIFFUSE LARGE B-CELL LYMPHOMA
     Route: 048
     Dates: start: 20121029
  10. PREDNISONE [Suspect]
     Route: 048
  11. ZYLORIC [Concomitant]
     Indication: DRUG USE FOR UNKNOWN INDICATION
     Route: 065
     Dates: start: 20121018
  12. PANTOZOL [Concomitant]
     Indication: GASTRIC ULCER PROPHYLAXIS
     Route: 065
     Dates: start: 20121029
  13. PRIMPERAN [Concomitant]
     Indication: NAUSEA
     Route: 065
     Dates: start: 20121029, end: 20121029
  14. PRIMPERAN [Concomitant]
     Indication: VOMITING
     Route: 065
     Dates: start: 20121029
  15. PARAGOL [Concomitant]
     Indication: CONSTIPATION
     Route: 065
     Dates: start: 20121029
  16. MYCOSTATIN [Concomitant]
     Indication: MUCOSITIS ORAL
     Route: 065
     Dates: start: 20121029
  17. DAFALGAN [Concomitant]
     Indication: DRUG USE FOR UNKNOWN INDICATION
     Route: 065
     Dates: start: 20121029
  18. VOLTAREN [Concomitant]
     Indication: DRUG USE FOR UNKNOWN INDICATION
     Route: 065
     Dates: start: 20121009
  19. VALVERDE SYRUP [Concomitant]
     Indication: DRUG USE FOR UNKNOWN INDICATION
     Route: 065

REACTIONS (1)
  - Headache [Recovered/Resolved]
